FAERS Safety Report 24686813 (Version 2)
Quarter: 2024Q4

REPORT INFORMATION
  Report Type: Spontaneous
  Country: JP (occurrence: JP)
  Receive Date: 20241202
  Receipt Date: 20241204
  Transmission Date: 20250115
  Serious: Yes (Hospitalization)
  Sender: BAYER HEALTHCARE PHARMACEUTICALS INC.
  Company Number: JP-BAYER-2024A168323

PATIENT
  Age: 49 Year
  Sex: Female

DRUGS (1)
  1. YAZ [Suspect]
     Active Substance: DROSPIRENONE\ETHINYL ESTRADIOL
     Indication: Menopausal symptoms
     Route: 048

REACTIONS (3)
  - Pancreatitis acute [Recovered/Resolved]
  - Hypertriglyceridaemia [Recovered/Resolved]
  - Product use in unapproved indication [None]
